FAERS Safety Report 4386662-6 (Version None)
Quarter: 2004Q2

REPORT INFORMATION
  Report Type: 
  Country: None (occurrence: None)
  Receive Date: 20040623
  Receipt Date: 20040615
  Transmission Date: 20050107
  Serious: Yes (Hospitalization)
  Sender: FDA-Public Use
  Company Number: K200400884

PATIENT
  Age: 71 Year
  Sex: Male

DRUGS (6)
  1. ALTACE [Suspect]
     Indication: HYPERTENSION
     Dosage: 2.5 MG, QD, ORAL
     Route: 048
     Dates: start: 20000101
  2. AMARYL (GLIMEPIRIDE) 3MG [Suspect]
     Indication: DIABETES MELLITUS NON-INSULIN-DEPENDENT
     Dosage: 3 MG QD,ORAL
     Route: 048
     Dates: start: 19990101, end: 20040410
  3. ACTRAPID (INSULIN) SOLUTION, 58 IU [Suspect]
     Indication: DIABETES MELLITUS NON-INSULIN-DEPENDENT
     Dosage: 58 IU, QD, SUBCUTANEOUS
     Route: 058
     Dates: start: 20031201
  4. BELOC-ZOC MITE (METOPROLOL SUCCINATE) TABLET, 75MG [Suspect]
     Indication: HYPERTENSION
     Dosage: 2X23.75 MG, QD, ORAL
     Route: 048
     Dates: start: 20031201
  5. INSULIN SEMILENTE (INSULIN ZINC SUSPENSION) SOLUTION, 30IU [Suspect]
     Indication: DIABETES MELLITUS NON-INSULIN-DEPENDENT
     Dosage: 30 IU, QD, SUBCUTANEOUS
     Route: 058
     Dates: start: 20031201
  6. DIGITOXIN (DIGITOXIN) TABLET [Concomitant]

REACTIONS (3)
  - COMA [None]
  - DRUG INTERACTION [None]
  - SHOCK HYPOGLYCAEMIC [None]
